FAERS Safety Report 10910345 (Version 1)
Quarter: 2015Q1

REPORT INFORMATION
  Report Type: Report from Study
  Country: PH (occurrence: CA)
  Receive Date: 20150312
  Receipt Date: 20150312
  Transmission Date: 20150721
  Serious: Yes (Other)
  Sender: FDA-Public Use
  Company Number: CA-BAXTER-2014BAX016870

PATIENT
  Age: 2 Year
  Sex: Male

DRUGS (10)
  1. SUBTENON TOPOTECAN [Suspect]
     Active Substance: TOPOTECAN HYDROCHLORIDE
     Indication: CHEMOTHERAPY
     Route: 061
  2. SUBTENON TOPOTECAN [Suspect]
     Active Substance: TOPOTECAN HYDROCHLORIDE
     Route: 061
  3. TISSEEL VH [Suspect]
     Active Substance: FIBRINOGEN HUMAN\THROMBIN HUMAN
     Route: 061
  4. TISSEEL VH [Suspect]
     Active Substance: FIBRINOGEN HUMAN\THROMBIN HUMAN
     Route: 061
  5. SUBTENON TOPOTECAN [Suspect]
     Active Substance: TOPOTECAN HYDROCHLORIDE
     Route: 061
  6. TISSEEL VH [Suspect]
     Active Substance: FIBRINOGEN HUMAN\THROMBIN HUMAN
     Indication: OFF LABEL USE
     Route: 061
  7. TRIAMCINOLONE [Concomitant]
     Active Substance: TRIAMCINOLONE
     Indication: RETINOBLASTOMA
     Route: 057
  8. HYDROCORTISONE. [Concomitant]
     Active Substance: HYDROCORTISONE
     Indication: RETINOBLASTOMA
     Route: 065
  9. TISSEEL VH [Suspect]
     Active Substance: FIBRINOGEN HUMAN\THROMBIN HUMAN
     Indication: RETINOBLASTOMA
     Route: 061
  10. SUBTENON TOPOTECAN [Suspect]
     Active Substance: TOPOTECAN HYDROCHLORIDE
     Indication: RETINOBLASTOMA
     Route: 061

REACTIONS (5)
  - Lacrimation increased [Recovering/Resolving]
  - Conjunctival hyperaemia [Recovered/Resolved]
  - Injection site erythema [Recovered/Resolved]
  - Periorbital oedema [Recovering/Resolving]
  - Pruritus [Recovering/Resolving]
